FAERS Safety Report 18572724 (Version 1)
Quarter: 2020Q4

REPORT INFORMATION
  Report Type: Spontaneous
  Country: IE (occurrence: IE)
  Receive Date: 20201203
  Receipt Date: 20201203
  Transmission Date: 20210114
  Serious: Yes (Hospitalization, Other)
  Sender: FDA-Public Use
  Company Number: IE-SA-2020SA345873

PATIENT

DRUGS (3)
  1. PARACETAMOL [Suspect]
     Active Substance: ACETAMINOPHEN
     Indication: PREMEDICATION
     Dosage: 170 MG, QD
     Route: 048
     Dates: start: 20201109, end: 20201109
  2. ALDURAZYME [Suspect]
     Active Substance: LARONIDASE
     Indication: MUCOPOLYSACCHARIDOSIS I
     Dosage: 3RD DOSEINFUSION INCREASES IN INCREMENTS UNTIL 75 MINUTES. MAX RATE AFTER 75 MINUTES UNTIL INFUSION
     Route: 042
     Dates: start: 20201109, end: 20201109
  3. CHLORPHENAMINE [Suspect]
     Active Substance: CHLORPHENIRAMINE MALEATE
     Indication: PREMEDICATION
     Dosage: 1 MG, QD
     Route: 048
     Dates: start: 20201109, end: 20201109

REACTIONS (5)
  - Vomiting [Recovered/Resolved]
  - Haemodynamic instability [Recovered/Resolved]
  - Cyanosis [Recovered/Resolved]
  - Irritability [Recovered/Resolved]
  - Peripheral circulatory failure [Recovered/Resolved]

NARRATIVE: CASE EVENT DATE: 20201109
